FAERS Safety Report 6193311-3 (Version None)
Quarter: 2009Q2

REPORT INFORMATION
  Report Type: 
  Country: None (occurrence: None)
  Receive Date: 20090518
  Receipt Date: 20090507
  Transmission Date: 20091009
  Serious: Yes (Hospitalization, Other)
  Sender: FDA-Public Use
  Company Number: PHFR2005GB03473

PATIENT
  Age: 42 Year
  Sex: Male

DRUGS (3)
  1. LAMISIL [Suspect]
     Dosage: 250 MG/DAY
     Route: 048
     Dates: start: 20050210, end: 20050308
  2. AMLODIPINE [Concomitant]
     Indication: HYPOTENSION
     Dosage: 10 MG, QD
     Route: 048
  3. ATENOLOL [Concomitant]
     Indication: HYPOTENSION
     Dosage: 25 MG, QD
     Route: 048

REACTIONS (5)
  - DELUSION [None]
  - DELUSIONAL DISORDER, PERSECUTORY TYPE [None]
  - PARANOIA [None]
  - PSYCHOTIC DISORDER [None]
  - SCHIZOPHRENIA [None]
